FAERS Safety Report 17985303 (Version 1)
Quarter: 2020Q3

REPORT INFORMATION
  Report Type: Spontaneous
  Country: FR (occurrence: FR)
  Receive Date: 20200706
  Receipt Date: 20200706
  Transmission Date: 20201103
  Serious: Yes (Hospitalization, Other)
  Sender: FDA-Public Use
  Company Number: FR-PFIZER INC-2020256993

PATIENT
  Age: 65 Year
  Sex: Male
  Weight: 53 kg

DRUGS (10)
  1. EPLERENONE. [Suspect]
     Active Substance: EPLERENONE
     Dosage: 20 MG, 1X/DAY
     Route: 048
  2. PANTOPRAZOLE [Concomitant]
     Active Substance: PANTOPRAZOLE
     Dosage: 20 MG, 1X/DAY
     Route: 048
  3. BISOCE [Suspect]
     Active Substance: BISOPROLOL
     Dosage: 1.5 DF, 1X/DAY, 5 MG IN THE MORNING, 2.5 MG IN THE EVENING
     Route: 048
  4. LASILIX [FUROSEMIDE] [Suspect]
     Active Substance: FUROSEMIDE
     Dosage: 40 MG, 1X/DAY
     Route: 048
  5. KARDEGIC [Concomitant]
     Active Substance: ASPIRIN DL-LYSINE
     Dosage: 75 MG, 1X/DAY
     Route: 048
  6. CEFOTAXIME [Concomitant]
     Active Substance: CEFOTAXIME SODIUM
     Indication: INFECTION
     Dosage: UNK
     Route: 051
     Dates: start: 20200604, end: 20200604
  7. ENTRESTO [Suspect]
     Active Substance: SACUBITRIL\VALSARTAN
     Dosage: 2 DF, 1X/DAY
     Route: 048
  8. TAHOR [Concomitant]
     Active Substance: ATORVASTATIN CALCIUM
     Dosage: 80 MG, 1X/DAY
     Route: 048
  9. ROVAMYCINE [SPIRAMYCIN ADEPATE] [Concomitant]
     Active Substance: SPIRAMYCIN ADIPATE
     Indication: INFECTION
     Dosage: UNK
     Route: 065
     Dates: start: 20200604, end: 20200604
  10. VIMPAT [Concomitant]
     Active Substance: LACOSAMIDE
     Dosage: 100 MG, 1X/DAY
     Route: 048

REACTIONS (4)
  - Septic shock [Recovered/Resolved]
  - Condition aggravated [Recovered/Resolved]
  - Off label use [Unknown]
  - Circulatory collapse [Recovered/Resolved]

NARRATIVE: CASE EVENT DATE: 20200605
